FAERS Safety Report 7381373-7 (Version None)
Quarter: 2011Q1

REPORT INFORMATION
  Report Type: 
  Country: None (occurrence: None)
  Receive Date: 20110324
  Receipt Date: 20110324
  Transmission Date: 20110831
  Serious: Yes (Hospitalization, Disabling)
  Sender: FDA-Public Use
  Company Number: None

PATIENT
  Sex: Female
  Weight: 54.4316 kg

DRUGS (2)
  1. RISPERDAL [Suspect]
     Indication: SCHIZOPHRENIA, PARANOID TYPE
     Dosage: 37.5MG ONCE EVERY OTHER WEEK
     Dates: start: 20040101, end: 20050101
  2. RISPERDAL [Suspect]
     Indication: SCHIZOPHRENIA, PARANOID TYPE
     Dosage: 37.5MG ONCE EVERY OTHER WEEK
     Dates: start: 20090101, end: 20110101

REACTIONS (12)
  - DYSPNOEA [None]
  - ANXIETY [None]
  - MUSCLE TWITCHING [None]
  - NERVOUSNESS [None]
  - IRRITABILITY [None]
  - FATIGUE [None]
  - INFECTION SUSCEPTIBILITY INCREASED [None]
  - CONFUSIONAL STATE [None]
  - ABDOMINAL PAIN [None]
  - PAIN IN EXTREMITY [None]
  - PALPITATIONS [None]
  - RESTLESSNESS [None]
